FAERS Safety Report 6474200-3 (Version None)
Quarter: 2009Q4

REPORT INFORMATION
  Report Type: 
  Country: None (occurrence: None)
  Receive Date: 20091204
  Receipt Date: 20091126
  Transmission Date: 20100525
  Serious: Yes (Hospitalization)
  Sender: FDA-Public Use
  Company Number: DE-PFIZER INC-2009236686

PATIENT
  Age: 27 Year
  Sex: Male
  Weight: 76 kg

DRUGS (9)
  1. ZYVOXID [Suspect]
     Indication: TUBERCULOSIS
     Dosage: 600 MG, 1X/DAY
     Route: 048
     Dates: start: 20090327, end: 20090409
  2. PYRAZINAMIDE [Suspect]
     Indication: TUBERCULOSIS
     Dosage: 1500 MG, 1X/DAY
     Route: 048
     Dates: start: 20090325, end: 20090409
  3. BIKLIN [Concomitant]
     Indication: TUBERCULOSIS
     Dosage: 1000 MG, 1X/DAY
     Route: 042
     Dates: start: 20090326
  4. SEROMYCIN [Concomitant]
     Indication: TUBERCULOSIS
     Dosage: 250 MG, UNK
     Route: 048
     Dates: start: 20090402
  5. PARA AMINOSALICYLIC ACID [Concomitant]
     Indication: TUBERCULOSIS
     Dosage: 13490 MG, 1X/DAY
     Route: 042
     Dates: start: 20090402
  6. TAVANIC [Concomitant]
     Indication: TUBERCULOSIS
     Dosage: 500 MG, 2X/DAY
     Route: 048
     Dates: start: 20090325
  7. KALINOR-BRAUSETABLETTEN [Concomitant]
     Dosage: 1 DF, 1X/DAY
     Dates: start: 20090402, end: 20090404
  8. PETEHA [Concomitant]
     Indication: TUBERCULOSIS
     Dosage: 750 MG, 1X/DAY
     Route: 048
     Dates: start: 20090325, end: 20090504
  9. PETEHA [Concomitant]
     Dosage: 1000 MG, 1X/DAY
     Route: 048
     Dates: start: 20090505

REACTIONS (1)
  - HEPATITIS ACUTE [None]
